FAERS Safety Report 24818466 (Version 1)
Quarter: 2025Q1

REPORT INFORMATION
  Report Type: Spontaneous
  Country: US (occurrence: US)
  Receive Date: 20250108
  Receipt Date: 20250108
  Transmission Date: 20250409
  Serious: Yes (Life-Threatening, Hospitalization, Other)
  Sender: HIKMA
  Company Number: US-MLMSERVICE-20241223-PI316435-00050-1

PATIENT
  Sex: Male

DRUGS (2)
  1. AMLODIPINE [Interacting]
     Active Substance: AMLODIPINE BESYLATE
     Indication: Product used for unknown indication
     Route: 048
  2. LISINOPRIL [Interacting]
     Active Substance: LISINOPRIL
     Indication: Product used for unknown indication
     Route: 048

REACTIONS (6)
  - Renal injury [Unknown]
  - Shock [Recovering/Resolving]
  - Distributive shock [Recovering/Resolving]
  - Sepsis [Recovering/Resolving]
  - Drug interaction [Recovered/Resolved]
  - Overdose [Recovering/Resolving]
